FAERS Safety Report 19084088 (Version 1)
Quarter: 2021Q2

REPORT INFORMATION
  Report Type: Spontaneous
  Country: US (occurrence: US)
  Receive Date: 20210401
  Receipt Date: 20210401
  Transmission Date: 20210717
  Serious: Yes (Other)
  Sender: FDA-Public Use
  Company Number: US-TAKEDA-2021TUS018552

PATIENT
  Sex: Female
  Weight: 60 kg

DRUGS (7)
  1. TYLENOL [Suspect]
     Active Substance: ACETAMINOPHEN
     Indication: PRODUCT USED FOR UNKNOWN INDICATION
     Dosage: UNK
     Route: 065
  2. BENADRYL [Suspect]
     Active Substance: DIPHENHYDRAMINE HYDROCHLORIDE
     Indication: PRODUCT USED FOR UNKNOWN INDICATION
     Dosage: UNK
     Route: 065
  3. VITAMIN C [Concomitant]
     Active Substance: ASCORBIC ACID
     Dosage: 1000 GRAM, QD
  4. VITAMIN B COMPLEX/B12 [VITAMIN B COMPLEX] [Concomitant]
     Dosage: UNK
  5. ENTYVIO [Suspect]
     Active Substance: VEDOLIZUMAB
     Indication: CROHN^S DISEASE
     Dosage: UNK
     Route: 065
  6. BABY ASPIRIN [Concomitant]
     Active Substance: ASPIRIN
     Dosage: UNK
  7. DIAZEPAM. [Concomitant]
     Active Substance: DIAZEPAM
     Indication: DIVERTICULITIS
     Dosage: 5 MILLIGRAM

REACTIONS (9)
  - Nausea [Unknown]
  - Arthralgia [Unknown]
  - Joint warmth [Unknown]
  - Fatigue [Unknown]
  - Asthenia [Unknown]
  - Crohn^s disease [Unknown]
  - Back pain [Unknown]
  - Dehydration [Unknown]
  - Headache [Unknown]
